FAERS Safety Report 7875335-0 (Version None)
Quarter: 2011Q4

REPORT INFORMATION
  Report Type: 
  Country: None (occurrence: None)
  Receive Date: 20111031
  Receipt Date: 20111019
  Transmission Date: 20120403
  Serious: Yes (Hospitalization, Disabling)
  Sender: FDA-Public Use
  Company Number: US-GLAXOSMITHKLINE-A0884838A

PATIENT
  Age: 55 Year
  Sex: Male

DRUGS (7)
  1. AVANDIA [Suspect]
     Indication: DIABETES MELLITUS
     Dosage: 2MG SINGLE DOSE
     Route: 048
     Dates: start: 20040101, end: 20081001
  2. KLONOPIN [Concomitant]
  3. RANITIDINE [Concomitant]
  4. IMIPRAMINE [Concomitant]
  5. ACIPHEX [Concomitant]
  6. LISINOPRIL [Concomitant]
  7. ATENOLOL [Concomitant]

REACTIONS (2)
  - FATIGUE [None]
  - CEREBROVASCULAR ACCIDENT [None]
